FAERS Safety Report 4745662-4 (Version None)
Quarter: 2005Q3

REPORT INFORMATION
  Report Type: 
  Country: None (occurrence: None)
  Receive Date: 20050811
  Receipt Date: 20050802
  Transmission Date: 20060218
  Serious: Yes (Other)
  Sender: FDA-Public Use
  Company Number: 2005111469

PATIENT
  Age: 68 Year
  Sex: Male
  Weight: 85 kg

DRUGS (8)
  1. LYRICA [Suspect]
     Indication: NEUROPATHIC PAIN
     Dosage: 75 MG, ORAL
     Route: 048
     Dates: start: 20050301
  2. METFORMIN HCL [Concomitant]
  3. QUINAPRIL HCL [Concomitant]
  4. ASPIRIN [Concomitant]
  5. FLOMAX MR (TAMSULOSIN HYDROCHLORIDE) [Concomitant]
  6. EFFEXOR [Concomitant]
  7. TRAMADOL HCL [Concomitant]
  8. LANSOPRAZOLE [Concomitant]

REACTIONS (2)
  - HYPOGLYCAEMIA [None]
  - WEIGHT INCREASED [None]
